FAERS Safety Report 7530368-9 (Version None)
Quarter: 2011Q2

REPORT INFORMATION
  Report Type: 
  Country: None (occurrence: None)
  Receive Date: 20110607
  Receipt Date: 20110526
  Transmission Date: 20111010
  Serious: Yes (Hospitalization, Other)
  Sender: FDA-Public Use
  Company Number: FR-ELI_LILLY_AND_COMPANY-FR201012006174

PATIENT
  Sex: Male
  Weight: 80 kg

DRUGS (8)
  1. ALDACTONE [Concomitant]
     Indication: CARDIAC FAILURE CONGESTIVE
     Dosage: UNK
  2. HUMULIN                            /00646001/ [Concomitant]
     Dosage: UNK
  3. HYPERIUM [Concomitant]
     Indication: ARRHYTHMIA
     Dosage: UNK
  4. LANTUS [Concomitant]
     Dosage: UNK
  5. PAROXETINE HCL [Concomitant]
     Dosage: UNK
  6. FORTEO [Suspect]
     Indication: OSTEOPOROSIS
     Dosage: 20 UG, DAILY (1/D)
     Route: 058
     Dates: start: 20100927, end: 20101120
  7. LASIX [Concomitant]
     Indication: ARRHYTHMIA
     Dosage: 1 DF, QD
  8. NEXIUM [Concomitant]
     Indication: ARRHYTHMIA
     Dosage: 40 MG, QD

REACTIONS (5)
  - SYNCOPE [None]
  - LUNG DISORDER [None]
  - CONDUCTION DISORDER [None]
  - AORTIC ARTERIOSCLEROSIS [None]
  - PNEUMOCOCCAL SEPSIS [None]
